FAERS Safety Report 7942496-4 (Version None)
Quarter: 2011Q4

REPORT INFORMATION
  Report Type: 
  Country: None (occurrence: None)
  Receive Date: 20111128
  Receipt Date: 20111118
  Transmission Date: 20120403
  Serious: Yes (Death, Hospitalization)
  Sender: FDA-Public Use
  Company Number: NL-GLAXOSMITHKLINE-B0747393D

PATIENT
  Sex: Male
  Weight: 79.7 kg

DRUGS (5)
  1. METOCLOPRAMIDE [Concomitant]
     Route: 048
  2. HALOPERIDOL [Concomitant]
  3. IFOSFAMIDE [Suspect]
     Indication: NEOPLASM
     Dosage: 3GM2 CYCLIC
     Route: 042
     Dates: start: 20110830, end: 20111014
  4. ACETAMINOPHEN [Concomitant]
     Dosage: 1000MG FOUR TIMES PER DAY
     Route: 048
  5. PAZOPANIB [Suspect]
     Indication: NEOPLASM
     Dosage: 200MG PER DAY
     Route: 048
     Dates: start: 20110823, end: 20111014

REACTIONS (1)
  - MULTI-ORGAN FAILURE [None]
